FAERS Safety Report 19402783 (Version 1)
Quarter: 2021Q2

REPORT INFORMATION
  Report Type: Spontaneous
  Country: US (occurrence: US)
  Receive Date: 20210610
  Receipt Date: 20210610
  Transmission Date: 20210717
  Serious: Yes (Hospitalization, Other)
  Sender: FDA-Public Use
  Company Number: US-ASTRAZENECA-2021A494286

PATIENT
  Age: 1045 Month
  Sex: Female
  Weight: 49 kg

DRUGS (2)
  1. LYNPARZA [Suspect]
     Active Substance: OLAPARIB
     Indication: HEPATIC NEOPLASM
     Route: 048
  2. LYNPARZA [Suspect]
     Active Substance: OLAPARIB
     Indication: HEPATIC NEOPLASM
     Route: 048

REACTIONS (10)
  - Pulmonary oedema [Unknown]
  - Head injury [Unknown]
  - Subdural haematoma [Unknown]
  - Abdominal distension [Unknown]
  - Dizziness [Unknown]
  - Fluid retention [Unknown]
  - Gait disturbance [Unknown]
  - Fall [Unknown]
  - Pain in extremity [Unknown]
  - Oedema peripheral [Unknown]

NARRATIVE: CASE EVENT DATE: 202103
